FAERS Safety Report 10084819 (Version 3)
Quarter: 2014Q2

REPORT INFORMATION
  Report Type: Spontaneous
  Country: CH (occurrence: CH)
  Receive Date: 20140417
  Receipt Date: 20140505
  Transmission Date: 20141212
  Serious: Yes (Hospitalization)
  Sender: FDA-Public Use
  Company Number: CH-ELI_LILLY_AND_COMPANY-CH201404002819

PATIENT
  Age: 63 Year
  Sex: Male
  Weight: 81 kg

DRUGS (3)
  1. EFIENT [Suspect]
     Indication: ACUTE CORONARY SYNDROME
     Dosage: 10 MG, QD
     Route: 048
     Dates: start: 20120428, end: 20130427
  2. ACETYLSALICYLIC ACID [Concomitant]
     Dosage: 100 MG, QD
     Route: 065
     Dates: start: 20120427
  3. PLAVIX [Concomitant]
     Dosage: 600 MG, UNK
     Dates: start: 20120427

REACTIONS (3)
  - Angina unstable [Recovered/Resolved]
  - Dizziness [Unknown]
  - Drug dose omission [Unknown]
